APPROVED DRUG PRODUCT: FUROSEMIDE
Active Ingredient: FUROSEMIDE
Strength: 40MG
Dosage Form/Route: TABLET;ORAL
Application: A070450 | Product #001
Applicant: WATSON LABORATORIES INC
Approved: Nov 22, 1985 | RLD: No | RS: No | Type: DISCN